FAERS Safety Report 6017131-5 (Version None)
Quarter: 2008Q4

REPORT INFORMATION
  Report Type: 
  Country: None (occurrence: None)
  Receive Date: 20081223
  Receipt Date: 20081212
  Transmission Date: 20090506
  Serious: Yes (Death, Other)
  Sender: FDA-Public Use
  Company Number: IN-ROCHE-603027

PATIENT
  Sex: Male
  Weight: 48 kg

DRUGS (6)
  1. INTERFERON ALFA-2A [Suspect]
     Dosage: DOSE = 9 MIU / 0.5 ML
     Route: 058
     Dates: start: 20081019
  2. BEVACIZUMAB [Suspect]
     Route: 042
     Dates: start: 20081019
  3. LANSOPRAZOLE [Concomitant]
     Indication: GASTRITIS
     Dosage: DRUG NAME - ARTAN 3000
     Route: 048
     Dates: start: 20080925
  4. MULTIVITAMIN NOS [Concomitant]
     Dosage: DRUG NAME - OXYTOL-S (MULTIVITAMIN).
     Route: 048
     Dates: start: 20080925
  5. CROCIN [Concomitant]
     Dates: start: 20080919
  6. PEPTIDIN [Concomitant]
     Dosage: DRUG NAME- PROCTIMEN 3TSP, INDICATION- DECREASE IN APPETITIS
     Route: 048
     Dates: start: 20080925

REACTIONS (2)
  - ANAEMIA [None]
  - DEATH [None]
